FAERS Safety Report 23066696 (Version 1)
Quarter: 2023Q4

REPORT INFORMATION
  Report Type: Spontaneous
  Country: US (occurrence: US)
  Receive Date: 20231016
  Receipt Date: 20231016
  Transmission Date: 20240110
  Serious: Yes (Death, Other)
  Sender: FDA-Public Use
  Company Number: US-SANDOZ-SDZ2023US041557

PATIENT
  Age: 57 Year
  Sex: Female

DRUGS (3)
  1. DECITABINE [Suspect]
     Active Substance: DECITABINE
     Indication: Acute myeloid leukaemia
     Route: 065
  2. VENETOCLAX [Suspect]
     Active Substance: VENETOCLAX
     Indication: Cardiopulmonary failure
     Route: 065
  3. VENETOCLAX [Suspect]
     Active Substance: VENETOCLAX
     Indication: Cardiopulmonary failure
     Route: 065

REACTIONS (7)
  - Pneumocystis jirovecii infection [Fatal]
  - Cardiopulmonary failure [Fatal]
  - Pancytopenia [Fatal]
  - Septic shock [Fatal]
  - Staphylococcal infection [Fatal]
  - Renal failure [Fatal]
  - Off label use [Unknown]
